FAERS Safety Report 14621719 (Version 1)
Quarter: 2018Q1

REPORT INFORMATION
  Report Type: Spontaneous
  Country: DK (occurrence: DK)
  Receive Date: 20180310
  Receipt Date: 20180310
  Transmission Date: 20180509
  Serious: Yes (Other)
  Sender: FDA-Public Use
  Company Number: DK-BRISTOL-MYERS SQUIBB COMPANY-BMS-2016-082488

PATIENT
  Age: 61 Year
  Sex: Male

DRUGS (1)
  1. KENALOG [Suspect]
     Active Substance: TRIAMCINOLONE ACETONIDE
     Indication: UVEITIS
     Dosage: 1 ML, UNK
     Route: 065
     Dates: start: 20160901

REACTIONS (3)
  - Product use in unapproved indication [Unknown]
  - Diplopia [Recovering/Resolving]
  - Extraocular muscle paresis [Unknown]

NARRATIVE: CASE EVENT DATE: 20160901
